FAERS Safety Report 8254850-4 (Version None)
Quarter: 2012Q2

REPORT INFORMATION
  Report Type: 
  Country: None (occurrence: None)
  Receive Date: 20120403
  Receipt Date: 20120402
  Transmission Date: 20120825
  Serious: Yes (Death, Hospitalization, Other)
  Sender: FDA-Public Use
  Company Number: PHFR2011IE006340

PATIENT
  Sex: Male

DRUGS (1)
  1. CLOZARIL [Suspect]
     Indication: SCHIZOPHRENIA
     Dosage: 125 MG
     Route: 048
     Dates: start: 20100913

REACTIONS (4)
  - DEHYDRATION [None]
  - MENTAL DISORDER [None]
  - INTESTINAL ISCHAEMIA [None]
  - VOMITING [None]
